FAERS Safety Report 8935260 (Version 1)
Quarter: 2012Q4

REPORT INFORMATION
  Report Type: 
  Country: US (occurrence: US)
  Receive Date: 20121129
  Receipt Date: 20121129
  Transmission Date: 20130627
  Serious: Yes (Life-Threatening, Hospitalization)
  Sender: FDA-Public Use
  Company Number: US-ARROW-2012-20605

PATIENT
  Age: 58 Year
  Sex: Female

DRUGS (6)
  1. PREDNISONE (UNKNOWN) [Suspect]
     Indication: PYODERMA GANGRENOSUM
     Dosage: 60 mg, daily
     Route: 048
  2. PREDNISONE (UNKNOWN) [Suspect]
     Dosage: 100 mg, daily
     Route: 048
  3. CYCLOSPORINE (WATSON LABORATORIES) [Suspect]
     Indication: PYODERMA GANGRENOSUM
     Dosage: 400 mg, daily
     Route: 048
  4. CYCLOSPORINE (WATSON LABORATORIES) [Suspect]
     Dosage: 200 mg, daily
     Route: 048
  5. METHYLPREDNISOLONE [Suspect]
     Indication: PYODERMA GANGRENOSUM
     Dosage: 80 mg, tid
     Route: 042
  6. SODIUM HYPOCHLORITE [Concomitant]
     Indication: WOUND TREATMENT
     Dosage: UNK, tid
     Route: 061

REACTIONS (12)
  - Escherichia sepsis [Recovered/Resolved]
  - Myocardial infarction [Recovered/Resolved]
  - Pulmonary embolism [Recovered/Resolved]
  - Pyoderma gangrenosum [Recovering/Resolving]
  - Condition aggravated [Recovering/Resolving]
  - Drug ineffective [Recovering/Resolving]
  - Drug dose omission [Recovered/Resolved]
  - Treatment noncompliance [Recovered/Resolved]
  - Medication error [Recovered/Resolved]
  - Depression [None]
  - Pain [None]
  - Hypotension [None]
